FAERS Safety Report 9738823 (Version 4)
Quarter: 2014Q1

REPORT INFORMATION
  Report Type: Spontaneous
  Country: US (occurrence: US)
  Receive Date: 20131209
  Receipt Date: 20140128
  Transmission Date: 20141002
  Serious: No
  Sender: FDA-Public Use
  Company Number: US-PFIZER INC-2013348948

PATIENT
  Sex: Male

DRUGS (2)
  1. LYRICA [Suspect]
     Dosage: 100 MG, UNK
  2. TIKOSYN [Suspect]
     Dosage: 0.5 MG, UNK

REACTIONS (1)
  - Blood test abnormal [Unknown]
